FAERS Safety Report 9230693 (Version 1)
Quarter: 2013Q2

REPORT INFORMATION
  Report Type: Spontaneous
  Country: JP (occurrence: JP)
  Receive Date: 20130415
  Receipt Date: 20130415
  Transmission Date: 20140414
  Serious: Yes (Death)
  Sender: FDA-Public Use
  Company Number: JP-PFIZER INC-2013113575

PATIENT
  Age: 39 Year
  Sex: Male

DRUGS (3)
  1. METHYLPREDNISOLONE SODIUM SUCCINATE [Suspect]
     Indication: GRAFT VERSUS HOST DISEASE IN SKIN
     Dosage: UNK
  2. BUSULFAN [Concomitant]
     Dosage: UNK
     Route: 041
  3. FLUDARABINE [Concomitant]
     Dosage: UNK
     Route: 042

REACTIONS (3)
  - Pneumonia viral [Fatal]
  - BK virus infection [Fatal]
  - Cystitis haemorrhagic [Fatal]
